FAERS Safety Report 8796686 (Version 1)
Quarter: 2012Q4

REPORT INFORMATION
  Report Type: 
  Country: US (occurrence: US)
  Receive Date: 20120919
  Receipt Date: 20120919
  Transmission Date: 20130627
  Serious: Yes (Other)
  Sender: FDA-Public Use
  Company Number: US-009507513-1209USA006026

PATIENT

DRUGS (1)
  1. SAPHRIS [Suspect]
     Dosage: 5 mg, qam
     Route: 060

REACTIONS (4)
  - Dizziness [Unknown]
  - VIIth nerve paralysis [Unknown]
  - Blood glucose increased [Unknown]
  - Sedation [Unknown]
